FAERS Safety Report 23298334 (Version 1)
Quarter: 2023Q4

REPORT INFORMATION
  Report Type: Spontaneous
  Country: US (occurrence: US)
  Receive Date: 20231214
  Receipt Date: 20231214
  Transmission Date: 20240110
  Serious: Yes (Other)
  Sender: FDA-Public Use
  Company Number: US-ASTELLAS-2023EU005222

PATIENT
  Age: 36 Year
  Sex: Male

DRUGS (8)
  1. TACROLIMUS [Interacting]
     Active Substance: TACROLIMUS
     Indication: Allogenic stem cell transplantation
     Dosage: 3 MG BY MOUTH EVERY MORNING AND 2.5 MG BY MOUTH EVERY NIGHT (TWICE DAILY)
     Route: 048
  2. TACROLIMUS [Interacting]
     Active Substance: TACROLIMUS
     Dosage: 1 MG, ONCE DAILY (TROUGH LEVEL 7.5 NG/ML)
     Route: 048
  3. TACROLIMUS [Interacting]
     Active Substance: TACROLIMUS
     Dosage: 2.5 MG, TWICE DAILY (TROUGH LEVEL 12.1 NG/ML)
     Route: 048
  4. TACROLIMUS [Interacting]
     Active Substance: TACROLIMUS
     Dosage: 1 MG, TWICE DAILY (TROUGH OF 3.5 NG/ML)
     Route: 048
  5. TACROLIMUS [Interacting]
     Active Substance: TACROLIMUS
     Route: 048
  6. PAXLOVID [Interacting]
     Active Substance: NIRMATRELVIR\RITONAVIR
     Indication: COVID-19
     Dosage: UNK UNK, UNKNOWN FREQ.
     Route: 065
  7. POSACONAZOLE [Concomitant]
     Active Substance: POSACONAZOLE
     Indication: Antifungal prophylaxis
     Route: 065
  8. POSACONAZOLE [Concomitant]
     Active Substance: POSACONAZOLE
     Dosage: UNK UNK, UNKNOWN FREQ.
     Route: 065

REACTIONS (3)
  - Toxicity to various agents [Recovered/Resolved]
  - Labelled drug-drug interaction issue [Unknown]
  - Off label use [Unknown]
